FAERS Safety Report 17517504 (Version 1)
Quarter: 2020Q1

REPORT INFORMATION
  Report Type: Spontaneous
  Country: US (occurrence: US)
  Receive Date: 20200309
  Receipt Date: 20200309
  Transmission Date: 20200409
  Serious: No
  Sender: FDA-Public Use
  Company Number: US-SA-2020SA060478

PATIENT
  Age: 60 Year
  Sex: Male

DRUGS (1)
  1. LANTUS SOLOSTAR [Suspect]
     Active Substance: INSULIN GLARGINE
     Indication: TYPE 2 DIABETES MELLITUS
     Dosage: 15-30 UNITS AT NIGHT
     Route: 065
     Dates: start: 20200303

REACTIONS (5)
  - Circumstance or information capable of leading to medication error [Unknown]
  - Paraesthesia [Unknown]
  - Feeling abnormal [Recovered/Resolved]
  - Muscle spasms [Unknown]
  - Feeling abnormal [Unknown]
